FAERS Safety Report 7488972-2 (Version None)
Quarter: 2011Q1

REPORT INFORMATION
  Report Type: 
  Country: None (occurrence: None)
  Receive Date: 20110316
  Receipt Date: 20101008
  Transmission Date: 20110831
  Serious: Yes (Other)
  Sender: FDA-Public Use
  Company Number: 10-001451

PATIENT
  Age: 71 Year
  Sex: Female
  Weight: 91.6 kg

DRUGS (2)
  1. ESTRACE [Suspect]
     Indication: PROPHYLAXIS
     Dosage: 0.01%, BID, VAGINAL
     Route: 067
     Dates: start: 20100101, end: 20100101
  2. TIMOLOL MALEATE [Suspect]
     Indication: GLAUCOMA
     Dosage: OPHTHALMIC
     Route: 047

REACTIONS (1)
  - BREAST CANCER [None]
